FAERS Safety Report 12897989 (Version 1)
Quarter: 2016Q4

REPORT INFORMATION
  Report Type: Spontaneous
  Country: US (occurrence: US)
  Receive Date: 20161028
  Receipt Date: 20161028
  Transmission Date: 20170207
  Serious: Yes (Other)
  Sender: FDA-Public Use
  Company Number: None

PATIENT
  Age: 69 Year
  Sex: Female

DRUGS (1)
  1. ROSUVASTATIN. [Suspect]
     Active Substance: ROSUVASTATIN
     Indication: HYPERCHOLESTEROLAEMIA
     Route: 048
     Dates: start: 20161011, end: 20161025

REACTIONS (4)
  - Formication [None]
  - Skin exfoliation [None]
  - Pruritus generalised [None]
  - Product substitution issue [None]

NARRATIVE: CASE EVENT DATE: 20161013
